FAERS Safety Report 6833674-6 (Version None)
Quarter: 2010Q3

REPORT INFORMATION
  Report Type: 
  Country: None (occurrence: None)
  Receive Date: 20100712
  Receipt Date: 20070328
  Transmission Date: 20110219
  Serious: No
  Sender: FDA-Public Use
  Company Number: US-PFIZER INC-2007026657

PATIENT
  Sex: Male

DRUGS (11)
  1. CHANTIX [Suspect]
     Indication: NICOTINE DEPENDENCE
     Dates: start: 20070328
  2. TEGRETOL [Concomitant]
  3. ZYPREXA [Concomitant]
  4. KLONOPIN [Concomitant]
  5. ZELNORM [Concomitant]
  6. HYOSCYAMINE [Concomitant]
  7. FISH OIL [Concomitant]
  8. LOVAZA [Concomitant]
  9. ACETYLSALICYLIC ACID [Concomitant]
  10. PROTONIX [Concomitant]
     Indication: GASTROOESOPHAGEAL REFLUX DISEASE
  11. MECLIZINE [Concomitant]

REACTIONS (1)
  - COMPULSIONS [None]
